FAERS Safety Report 14957308 (Version 1)
Quarter: 2018Q2

REPORT INFORMATION
  Report Type: Spontaneous
  Country: FR (occurrence: FR)
  Receive Date: 20180531
  Receipt Date: 20180531
  Transmission Date: 20180711
  Serious: Yes (Other)
  Sender: FDA-Public Use
  Company Number: FR-MERCK KGAA-2048779

PATIENT
  Age: 49 Year
  Sex: Female

DRUGS (3)
  1. NOVOTHYROX [Suspect]
     Active Substance: LEVOTHYROXINE SODIUM
     Indication: PRODUCT USED FOR UNKNOWN INDICATION
  2. NOVOTHYROX [Suspect]
     Active Substance: LEVOTHYROXINE SODIUM
  3. NOVOTHYROX [Suspect]
     Active Substance: LEVOTHYROXINE SODIUM

REACTIONS (24)
  - Anterograde amnesia [None]
  - Balance disorder [None]
  - Asthenia [None]
  - Sleep disorder [None]
  - Alopecia [None]
  - Stress [None]
  - Fear of falling [None]
  - Memory impairment [None]
  - Arthralgia [None]
  - Social avoidant behaviour [None]
  - Malaise [None]
  - Migraine [None]
  - Affect lability [None]
  - Headache [None]
  - Anxiety [None]
  - Libido decreased [None]
  - Somnolence [None]
  - Dizziness [None]
  - Laboratory test abnormal [None]
  - Fatigue [None]
  - Feeling abnormal [None]
  - Self esteem decreased [None]
  - Crying [None]
  - Muscle spasms [None]

NARRATIVE: CASE EVENT DATE: 201706
